FAERS Safety Report 17493194 (Version 1)
Quarter: 2020Q1

REPORT INFORMATION
  Report Type: Spontaneous
  Country: US (occurrence: US)
  Receive Date: 20200303
  Receipt Date: 20200303
  Transmission Date: 20200409
  Serious: No
  Sender: FDA-Public Use
  Company Number: US-AMNEAL PHARMACEUTICALS-2019-IPXL-00531

PATIENT
  Sex: Male
  Weight: 95 kg

DRUGS (2)
  1. RYTARY [Suspect]
     Active Substance: CARBIDOPA\LEVODOPA
     Indication: PARKINSON^S DISEASE
     Dosage: 3 DOSAGE FORM, EVERY 4HR
     Route: 048
     Dates: start: 201901
  2. ESCITALOPRAM [Concomitant]
     Active Substance: ESCITALOPRAM OXALATE
     Indication: ANXIETY
     Dosage: UNK, QD
     Route: 048

REACTIONS (5)
  - Prescribed overdose [Unknown]
  - Constipation [Recovering/Resolving]
  - Dyskinesia [Recovering/Resolving]
  - Abnormal dreams [Recovering/Resolving]
  - Sleep terror [Recovering/Resolving]
